FAERS Safety Report 4417677-7 (Version None)
Quarter: 2004Q2

REPORT INFORMATION
  Report Type: 
  Country: None (occurrence: None)
  Receive Date: 20040629
  Receipt Date: 20031216
  Transmission Date: 20050107
  Serious: Yes (Hospitalization)
  Sender: FDA-Public Use
  Company Number: USA031254821

PATIENT
  Age: 60 Year
  Sex: Male
  Weight: 80 kg

DRUGS (8)
  1. HUMALOG [Suspect]
     Indication: DIABETES MELLITUS
     Dosage: 80 U/DAY
  2. ASPIRIN [Concomitant]
  3. IMDUR [Concomitant]
  4. TOPROL-XL [Concomitant]
  5. NORVASC [Concomitant]
  6. PRILOSEC [Concomitant]
  7. CAPTOPRIL [Concomitant]
  8. LIPITOR [Concomitant]

REACTIONS (2)
  - CHEST PAIN [None]
  - GLAUCOMA [None]
